FAERS Safety Report 24195439 (Version 3)
Quarter: 2025Q1

REPORT INFORMATION
  Report Type: Spontaneous
  Country: US (occurrence: US)
  Receive Date: 20240809
  Receipt Date: 20250220
  Transmission Date: 20250408
  Serious: No
  Sender: PFIZER
  Company Number: US-PFIZER INC-202400233150

PATIENT
  Age: 68 Year
  Sex: Female

DRUGS (16)
  1. XELJANZ XR [Suspect]
     Active Substance: TOFACITINIB CITRATE
     Dosage: 11 MG, 1X/DAY (30^S)
     Route: 048
     Dates: start: 2019
  2. OMEPRAZOLE [Concomitant]
     Active Substance: OMEPRAZOLE
  3. LUMIGAN [Concomitant]
     Active Substance: BIMATOPROST
  4. COMBIGAN [Concomitant]
     Active Substance: BRIMONIDINE TARTRATE\TIMOLOL MALEATE
  5. PREDNISONE [Concomitant]
     Active Substance: PREDNISONE
  6. LYRICA [Concomitant]
     Active Substance: PREGABALIN
  7. LOSARTAN AND HYDROCHLOROTHIAZIDE [Concomitant]
     Active Substance: HYDROCHLOROTHIAZIDE\LOSARTAN POTASSIUM
  8. VITAMIN C [Concomitant]
     Active Substance: ASCORBIC ACID
  9. ROSUVASTATIN CALCIUM [Concomitant]
     Active Substance: ROSUVASTATIN CALCIUM
  10. CYCLOBENZAPRINE HYDROCHLORIDE [Concomitant]
     Active Substance: CYCLOBENZAPRINE HYDROCHLORIDE
  11. MECLIZINE HYDROCHLORIDE [Concomitant]
     Active Substance: MECLIZINE HYDROCHLORIDE
  12. METOPROLOL SUCCINATE [Concomitant]
     Active Substance: METOPROLOL SUCCINATE
  13. VITAMIN D3 [Concomitant]
     Active Substance: CHOLECALCIFEROL
  14. PROLIA [Concomitant]
     Active Substance: DENOSUMAB
  15. MUCINEX [Concomitant]
     Active Substance: GUAIFENESIN
  16. PIOGLITAZONE [Concomitant]
     Active Substance: PIOGLITAZONE

REACTIONS (3)
  - Sinusitis [Recovered/Resolved]
  - Pain [Unknown]
  - Abdominal distension [Unknown]
